FAERS Safety Report 6975172-5 (Version None)
Quarter: 2010Q3

REPORT INFORMATION
  Report Type: 
  Country: None (occurrence: None)
  Receive Date: 20100910
  Receipt Date: 20090205
  Transmission Date: 20110219
  Serious: No
  Sender: FDA-Public Use
  Company Number: US-WYE-H08121809

PATIENT
  Sex: Female

DRUGS (3)
  1. PRISTIQ [Suspect]
     Indication: DEPRESSION
     Route: 048
     Dates: start: 20080601, end: 20090101
  2. PRISTIQ [Suspect]
     Dosage: ^CUTTING TABLET IN HALF AND TAKING EVERY OTHER DAY^
     Route: 048
     Dates: start: 20090101, end: 20090101
  3. PRISTIQ [Suspect]
     Dosage: ^CUTTING IT IN QUARTERS AND TAKING EVERY OTHER DAY, AS DIRECTED BY HER HCP^
     Dates: start: 20090201

REACTIONS (4)
  - DRUG WITHDRAWAL SYNDROME [None]
  - EMOTIONAL DISORDER [None]
  - LIBIDO DECREASED [None]
  - PARAESTHESIA [None]
